FAERS Safety Report 25414945 (Version 1)
Quarter: 2025Q2

REPORT INFORMATION
  Report Type: Spontaneous
  Country: DE (occurrence: DE)
  Receive Date: 20250609
  Receipt Date: 20250609
  Transmission Date: 20250716
  Serious: Yes (Other)
  Sender: JAZZ
  Company Number: DE-JAZZ PHARMACEUTICALS-2025-DE-014290

PATIENT

DRUGS (1)
  1. EPIDIOLEX [Suspect]
     Active Substance: CANNABIDIOL
     Indication: Neuronal ceroid lipofuscinosis

REACTIONS (2)
  - Psychotic disorder [Unknown]
  - Off label use [Unknown]
